FAERS Safety Report 4633467-4 (Version None)
Quarter: 2005Q2

REPORT INFORMATION
  Report Type: 
  Country: None (occurrence: None)
  Receive Date: 20050412
  Receipt Date: 20050329
  Transmission Date: 20051028
  Serious: Yes (Hospitalization, Other)
  Sender: FDA-Public Use
  Company Number: 2005-01077

PATIENT
  Age: 43 Year
  Sex: Male

DRUGS (1)
  1. CARISOPRODOL [Suspect]
     Indication: PAIN
     Dosage: 30 TABS (10500 MG) OR MORE DAILY, ORAL
     Route: 048

REACTIONS (1)
  - DRUG WITHDRAWAL SYNDROME [None]
